FAERS Safety Report 6158111-9 (Version None)
Quarter: 2009Q2

REPORT INFORMATION
  Report Type: 
  Country: None (occurrence: None)
  Receive Date: 20090414
  Receipt Date: 20090414
  Transmission Date: 20091009
  Serious: No
  Sender: FDA-Public Use
  Company Number: None

PATIENT
  Age: 57 Year
  Sex: Female
  Weight: 81.6475 kg

DRUGS (2)
  1. B12 CYANOCOBALAMIN 1000 UNKNOWN [Suspect]
     Dosage: 1000  I PER WEEK IM
     Route: 030
     Dates: start: 20070811, end: 20070907
  2. B12 CYANOCOBALAMIN 1000 ALPHA [Suspect]
     Dosage: 1000 1 PER WEEK IM
     Route: 030
     Dates: start: 20070818, end: 20070907

REACTIONS (2)
  - MOVEMENT DISORDER [None]
  - PAIN [None]
